FAERS Safety Report 9732767 (Version 2)
Quarter: 2014Q1

REPORT INFORMATION
  Report Type: Spontaneous
  Country: IT (occurrence: IT)
  Receive Date: 20131204
  Receipt Date: 20140123
  Transmission Date: 20141002
  Serious: Yes (Hospitalization)
  Sender: FDA-Public Use
  Company Number: IT-GLAXOSMITHKLINE-B0950507A

PATIENT
  Age: 79 Year
  Sex: Female

DRUGS (3)
  1. RYTHMOL [Suspect]
     Indication: ATRIAL FIBRILLATION
     Dosage: 300MG PER DAY
     Route: 048
     Dates: start: 20120101, end: 20131026
  2. PANTOPRAZOLE SODIUM [Concomitant]
     Route: 048
     Dates: start: 20120101, end: 20131026
  3. TOTALIP [Concomitant]
     Indication: HYPERCHOLESTEROLAEMIA
     Route: 048
     Dates: start: 20120101, end: 20131026

REACTIONS (2)
  - Dyspnoea [Recovering/Resolving]
  - Tachycardia [Recovering/Resolving]
